APPROVED DRUG PRODUCT: COLY-MYCIN S
Active Ingredient: COLISTIN SULFATE
Strength: EQ 25MG BASE/5ML
Dosage Form/Route: SUSPENSION;ORAL
Application: N050355 | Product #001
Applicant: PARKE DAVIS DIV WARNER LAMBERT CO
Approved: Approved Prior to Jan 1, 1982 | RLD: No | RS: No | Type: DISCN